FAERS Safety Report 10345759 (Version 2)
Quarter: 2014Q3

REPORT INFORMATION
  Report Type: Spontaneous
  Country: TR (occurrence: None)
  Receive Date: 20140723
  Receipt Date: 20140723
  Transmission Date: 20150326
  Serious: Yes (Other)
  Sender: FDA-Public Use
  Company Number: 7306874

PATIENT
  Age: 57 Year
  Sex: Female
  Weight: 65 kg

DRUGS (1)
  1. EUTHYROX [Suspect]
     Active Substance: LEVOTHYROXINE SODIUM
     Indication: HYPOTHYROIDISM
     Dosage: 100 MCG FOR 4 DAYS AND 75MCG FOR 3 DAYS
     Route: 048
     Dates: start: 201008

REACTIONS (8)
  - Autoimmune thyroiditis [None]
  - Rash erythematous [None]
  - Eczema [None]
  - Erythema annulare [None]
  - Pain [None]
  - Pruritus [None]
  - Back pain [None]
  - Measles [None]

NARRATIVE: CASE EVENT DATE: 201312
